FAERS Safety Report 7769179-8 (Version None)
Quarter: 2011Q3

REPORT INFORMATION
  Report Type: 
  Country: None (occurrence: None)
  Receive Date: 20110922
  Receipt Date: 20110913
  Transmission Date: 20111222
  Serious: Yes (Hospitalization)
  Sender: FDA-Public Use
  Company Number: PL-ROCHE-763232

PATIENT
  Age: 59 Year
  Sex: Male
  Weight: 82 kg

DRUGS (8)
  1. CYCLOSPORINE [Suspect]
     Dosage: 75 MG IN THE MORNING AND 50 MG IN THE EVENING
     Route: 048
     Dates: start: 20110210
  2. PREDNISONE [Suspect]
     Indication: KIDNEY TRANSPLANT REJECTION
     Route: 048
     Dates: start: 20091007
  3. MYCOPHENOLATE MOFETIL (CELLCEPT) [Suspect]
     Indication: KIDNEY TRANSPLANT REJECTION
     Route: 048
     Dates: start: 20091007
  4. BISOPROLOL FUMARATE [Concomitant]
     Dates: start: 20081018
  5. DOXAZOSIN MESYLATE [Concomitant]
     Dates: start: 20081208
  6. CYCLOSPORINE [Suspect]
     Indication: KIDNEY TRANSPLANT REJECTION
     Dosage: 125 MG IN THE MORNING AND 100 MG IN THE EVENING.
     Route: 048
     Dates: start: 20091007
  7. BISEPTOL [Concomitant]
     Dates: start: 20091203, end: 20110209
  8. CYCLOSPORINE [Suspect]
     Dosage: 100 MG IN MORNING AND 75 MG IN EVENING
     Route: 048
     Dates: start: 20110119

REACTIONS (2)
  - TRANSPLANT REJECTION [None]
  - URINARY TRACT INFECTION [None]
